FAERS Safety Report 18157919 (Version 1)
Quarter: 2020Q3

REPORT INFORMATION
  Report Type: Spontaneous
  Country: RU (occurrence: RU)
  Receive Date: 20200817
  Receipt Date: 20200817
  Transmission Date: 20201103
  Serious: Yes (Other)
  Sender: FDA-Public Use
  Company Number: RU-SA-2020SA209138

PATIENT

DRUGS (1)
  1. CLEXANE [Suspect]
     Active Substance: ENOXAPARIN SODIUM
     Indication: HYPERCOAGULATION

REACTIONS (4)
  - Stillbirth [Unknown]
  - Exposure during pregnancy [Unknown]
  - Product availability issue [Unknown]
  - Product use in unapproved indication [Unknown]
